FAERS Safety Report 6583743-3 (Version None)
Quarter: 2010Q1

REPORT INFORMATION
  Report Type: 
  Country: None (occurrence: None)
  Receive Date: 20100216
  Receipt Date: 20100210
  Transmission Date: 20100710
  Serious: Yes (Hospitalization)
  Sender: FDA-Public Use
  Company Number: JP-MERCK-1002USA01166

PATIENT
  Age: 79 Year
  Sex: Male

DRUGS (6)
  1. JANUVIA [Suspect]
     Indication: DIABETES MELLITUS
     Route: 048
     Dates: start: 20100105, end: 20100118
  2. NORVASC [Concomitant]
     Indication: HYPERTENSION
     Route: 048
     Dates: start: 20100105, end: 20100118
  3. CRAVIT [Concomitant]
     Indication: UPPER RESPIRATORY TRACT INFECTION
     Route: 048
     Dates: start: 20100105, end: 20100109
  4. LENDORMIN [Concomitant]
     Indication: INSOMNIA
     Route: 048
     Dates: start: 20100105, end: 20100118
  5. ETHYL ICOSAPENTATE [Concomitant]
     Route: 048
     Dates: start: 20100105, end: 20100118
  6. ACTOS [Concomitant]
     Indication: DIABETES MELLITUS
     Route: 048
     Dates: start: 20091124, end: 20100104

REACTIONS (3)
  - BLOOD AMYLASE INCREASED [None]
  - BLOOD ELASTASE INCREASED [None]
  - LIPASE INCREASED [None]
